FAERS Safety Report 25176001 (Version 2)
Quarter: 2025Q2

REPORT INFORMATION
  Report Type: Spontaneous
  Country: US (occurrence: US)
  Receive Date: 20250409
  Receipt Date: 20250508
  Transmission Date: 20250717
  Serious: No
  Sender: AMGEN
  Company Number: US-AMGEN-USASP2025069021

PATIENT
  Age: 41 Year
  Sex: Female

DRUGS (4)
  1. OTEZLA [Suspect]
     Active Substance: APREMILAST
     Indication: Psoriasis
     Dosage: 30 MILLIGRAM, BID
     Route: 048
     Dates: start: 20250325
  2. MAGNESIUM [Concomitant]
     Active Substance: MAGNESIUM
  3. SOTYKTU [Concomitant]
     Active Substance: DEUCRAVACITINIB
  4. UBRELVY [Concomitant]
     Active Substance: UBROGEPANT

REACTIONS (1)
  - Diarrhoea [Recovered/Resolved]

NARRATIVE: CASE EVENT DATE: 20250101
